FAERS Safety Report 9323081 (Version 1)
Quarter: 2013Q2

REPORT INFORMATION
  Report Type: Spontaneous
  Country: AU (occurrence: AU)
  Receive Date: 20130603
  Receipt Date: 20130603
  Transmission Date: 20140414
  Serious: No
  Sender: FDA-Public Use
  Company Number: AU-009507513-1305AUS016832

PATIENT
  Age: 85 Year
  Sex: 0

DRUGS (1)
  1. ZOLINZA [Suspect]

REACTIONS (1)
  - No therapeutic response [Unknown]
